FAERS Safety Report 8831654 (Version 1)
Quarter: 2012Q4

REPORT INFORMATION
  Report Type: 
  Country: PL (occurrence: PL)
  Receive Date: 20121009
  Receipt Date: 20121009
  Transmission Date: 20130627
  Serious: Yes (Other)
  Sender: FDA-Public Use
  Company Number: PL-GLAXOSMITHKLINE-B0836255A

PATIENT
  Age: 56 Year
  Sex: Female

DRUGS (2)
  1. TOPOTECAN [Suspect]
     Indication: CERVIX CARCINOMA
     Dosage: .75MGM2 Cyclic
     Route: 065
     Dates: start: 201010, end: 201102
  2. CISPLATIN [Suspect]
     Indication: CERVIX CARCINOMA
     Dosage: 50MGM2 Every 3 weeks
     Route: 065
     Dates: start: 201010, end: 201102

REACTIONS (13)
  - Peritoneal haemorrhage [Recovering/Resolving]
  - Genital haemorrhage [Unknown]
  - Hydronephrosis [Unknown]
  - Renal failure acute [Unknown]
  - Loss of consciousness [Unknown]
  - Shock haemorrhagic [Unknown]
  - Necrosis [Unknown]
  - Paradoxical drug reaction [Unknown]
  - Blood creatinine increased [Unknown]
  - Tachycardia [Unknown]
  - Hypotension [Unknown]
  - Anaemia [Unknown]
  - Blood urea increased [Unknown]
